FAERS Safety Report 15440890 (Version 1)
Quarter: 2018Q3

REPORT INFORMATION
  Report Type: Spontaneous
  Country: US (occurrence: US)
  Receive Date: 20180925
  Receipt Date: 20180925
  Transmission Date: 20181010
  Serious: Yes (Death)
  Sender: FDA-Public Use
  Company Number: None

PATIENT
  Age: 31 Year
  Sex: Male

DRUGS (7)
  1. DOXYCYCLO [Concomitant]
  2. MAVYRET [Suspect]
     Active Substance: GLECAPREVIR\PIBRENTASVIR
     Indication: CHRONIC HEPATITIS C
     Route: 048
     Dates: start: 20180712
  3. GABAPENTIN. [Concomitant]
     Active Substance: GABAPENTIN
  4. BUPRENORPHIN [Concomitant]
     Active Substance: BUPRENORPHINE
  5. ONDANSETRON [Concomitant]
     Active Substance: ONDANSETRON
  6. BUPROPIN HCL [Concomitant]
  7. ELIQUIS [Concomitant]
     Active Substance: APIXABAN

REACTIONS (1)
  - Death [None]

NARRATIVE: CASE EVENT DATE: 20180924
